FAERS Safety Report 12176605 (Version 2)
Quarter: 2016Q2

REPORT INFORMATION
  Report Type: Spontaneous
  Country: AT (occurrence: AT)
  Receive Date: 20160315
  Receipt Date: 20160407
  Transmission Date: 20160815
  Serious: Yes (Hospitalization)
  Sender: FDA-Public Use
  Company Number: AT-ROCHE-1724946

PATIENT
  Sex: Female

DRUGS (1)
  1. HERCEPTIN [Suspect]
     Active Substance: TRASTUZUMAB
     Indication: BREAST CANCER
     Dosage: (MAINTENANCE THERAPY)?INDICATION: MAMMA CARCINOMA
     Route: 065
     Dates: end: 201511

REACTIONS (3)
  - Gait disturbance [Unknown]
  - Secondary cerebellar degeneration [Unknown]
  - Nervous system disorder [Unknown]

NARRATIVE: CASE EVENT DATE: 201510
